FAERS Safety Report 24046788 (Version 1)
Quarter: 2024Q3

REPORT INFORMATION
  Report Type: Spontaneous
  Country: CN (occurrence: None)
  Receive Date: 20240703
  Receipt Date: 20240703
  Transmission Date: 20241016
  Serious: Yes (Hospitalization, Other)
  Sender: ASTRAZENECA
  Company Number: 2024A150283

PATIENT
  Age: 23771 Day
  Sex: Female
  Weight: 67 kg

DRUGS (8)
  1. FASLODEX [Suspect]
     Active Substance: FULVESTRANT
     Indication: Breast cancer female
     Route: 030
     Dates: start: 202303
  2. FASLODEX [Suspect]
     Active Substance: FULVESTRANT
     Indication: Endocrine disorder
     Route: 030
     Dates: start: 202303
  3. FASLODEX [Suspect]
     Active Substance: FULVESTRANT
     Indication: Breast cancer female
     Route: 030
     Dates: start: 20240502, end: 20240502
  4. FASLODEX [Suspect]
     Active Substance: FULVESTRANT
     Indication: Endocrine disorder
     Route: 030
     Dates: start: 20240502, end: 20240502
  5. PALBOCICLIB [Suspect]
     Active Substance: PALBOCICLIB
     Indication: Breast cancer female
     Route: 048
     Dates: start: 202303
  6. PALBOCICLIB [Suspect]
     Active Substance: PALBOCICLIB
     Indication: Endocrine disorder
     Route: 048
     Dates: start: 202303
  7. PALBOCICLIB [Suspect]
     Active Substance: PALBOCICLIB
     Indication: Breast cancer female
     Route: 048
     Dates: start: 20240307, end: 20240507
  8. PALBOCICLIB [Suspect]
     Active Substance: PALBOCICLIB
     Indication: Endocrine disorder
     Route: 048
     Dates: start: 20240307, end: 20240507

REACTIONS (1)
  - Myelosuppression [Recovering/Resolving]

NARRATIVE: CASE EVENT DATE: 20240514
